FAERS Safety Report 7182980-7 (Version None)
Quarter: 2010Q4

REPORT INFORMATION
  Report Type: 
  Country: None (occurrence: None)
  Receive Date: 20101210
  Receipt Date: 20101119
  Transmission Date: 20110411
  Serious: No
  Sender: FDA-Public Use
  Company Number: 2010-01015

PATIENT
  Age: 66 Year
  Sex: Male
  Weight: 77.1115 kg

DRUGS (2)
  1. ZICAM COLD REMEDY GEL SWABS [Suspect]
     Dosage: SPORADIC X 10YRS
     Dates: start: 19980101, end: 20080101
  2. ZICAM COLD REMEDY NASAL GEL [Suspect]
     Dosage: SPORADIC X 10DAYS
     Dates: start: 19980101, end: 20080101

REACTIONS (2)
  - AGEUSIA [None]
  - ANOSMIA [None]
